FAERS Safety Report 11671564 (Version 1)
Quarter: 2015Q4

REPORT INFORMATION
  Report Type: Spontaneous
  Country: US (occurrence: US)
  Receive Date: 20151027
  Receipt Date: 20151027
  Transmission Date: 20160304
  Serious: No
  Sender: FDA-Public Use
  Company Number: US-ELI_LILLY_AND_COMPANY-US201004008408

PATIENT
  Age: 66 Year
  Sex: Female

DRUGS (2)
  1. FORTEO [Suspect]
     Active Substance: TERIPARATIDE
     Indication: OSTEOPOROSIS
     Dosage: 20 UG, DAILY (1/D)
     Dates: start: 20100419, end: 20100518
  2. CHLORTHALIDONE. [Concomitant]
     Active Substance: CHLORTHALIDONE
     Indication: RENAL DISORDER
     Dosage: 25 MG, UNK
     Dates: end: 201004

REACTIONS (6)
  - Urticaria [Unknown]
  - Pruritus [Recovering/Resolving]
  - Drug interaction [Unknown]
  - Malaise [Unknown]
  - Feeling abnormal [Unknown]
  - Agitation [Unknown]

NARRATIVE: CASE EVENT DATE: 201004
